FAERS Safety Report 8801892 (Version 1)
Quarter: 2012Q4

REPORT INFORMATION
  Report Type: 
  Country: CO (occurrence: CO)
  Receive Date: 20120921
  Receipt Date: 20120921
  Transmission Date: 20130627
  Serious: Yes (Death, Hospitalization)
  Sender: FDA-Public Use
  Company Number: CO-PFIZER INC-2012233592

PATIENT
  Age: 37 Year
  Sex: Female

DRUGS (1)
  1. SUTENT [Suspect]
     Dosage: 1x/day
     Dates: start: 20090727

REACTIONS (2)
  - Death [Fatal]
  - Pyrexia [Unknown]
